FAERS Safety Report 6810457-4 (Version None)
Quarter: 2010Q2

REPORT INFORMATION
  Report Type: 
  Country: None (occurrence: None)
  Receive Date: 20100630
  Receipt Date: 20100616
  Transmission Date: 20101027
  Serious: Yes (Hospitalization, Other)
  Sender: FDA-Public Use
  Company Number: CA-MYLANLABS-2010S1010669

PATIENT
  Age: 58 Year
  Sex: Female

DRUGS (10)
  1. QUETIAPINE [Suspect]
     Dosage: 50MG TID
     Route: 065
  2. QUETIAPINE [Suspect]
     Dosage: 200MG QHS
     Route: 065
  3. CITALOPRAM HYDROBROMIDE [Suspect]
     Dosage: 60MG OD
     Route: 065
  4. HYDROCHLOROTHIAZIDE [Suspect]
     Dosage: 25MG OD
     Route: 065
  5. CLONAZEPAM [Concomitant]
     Dosage: 1MG TID
     Route: 065
  6. ACAMPROSATE [Concomitant]
     Dosage: 333MG TID
     Route: 065
  7. ATENOLOL [Concomitant]
     Dosage: 25MG BID
     Route: 065
  8. RANITIDINE [Concomitant]
     Dosage: 150MG OD
     Route: 065
  9. MIRTAZAPINE [Concomitant]
     Dosage: 30MG QHS
     Route: 065
  10. ROSUVASTATIN [Concomitant]
     Dosage: 10MG OD
     Route: 065

REACTIONS (3)
  - ELECTROCARDIOGRAM QT PROLONGED [None]
  - HYPOKALAEMIA [None]
  - TORSADE DE POINTES [None]
